FAERS Safety Report 8585440 (Version 2)
Quarter: 2012Q4

REPORT INFORMATION
  Report Type: 
  Country: DE (occurrence: DE)
  Receive Date: 20120530
  Receipt Date: 20121109
  Transmission Date: 20130627
  Serious: Yes (Life-Threatening)
  Sender: FDA-Public Use
  Company Number: DE-PFIZER INC-2012125336

PATIENT
  Age: 61 Year
  Sex: Male
  Weight: 90 kg

DRUGS (4)
  1. UNACID [Suspect]
     Indication: STAPHYLOCOCCAL INFECTION
     Dosage: 3 g, 3x/day, cumulative dose number (to first reaction): 45 g
     Route: 042
     Dates: start: 20111107, end: 20111111
  2. STAPHYLEX [Concomitant]
     Indication: STAPHYLOCOCCAL INFECTION
     Dosage: 1 g, 3x/day (cumulative dose number (to first reaction): 12 g
     Route: 042
     Dates: start: 20111109, end: 20111113
  3. CLOPIDOGREL [Concomitant]
     Indication: PERCUTANEOUS TRANSLUMINAL ANGIOPLASTY
     Dosage: 75 mg, UNK (permanent medication)
     Route: 048
  4. ASS [Concomitant]
     Indication: CORONARY ARTERY DISEASE
     Dosage: 100 mg, UNK (permanent medication)
     Route: 048

REACTIONS (2)
  - Drug eruption [Not Recovered/Not Resolved]
  - Acute generalised exanthematous pustulosis [Not Recovered/Not Resolved]
